FAERS Safety Report 10252018 (Version 2)
Quarter: 2014Q3

REPORT INFORMATION
  Report Type: Spontaneous
  Country: JP (occurrence: JP)
  Receive Date: 20140623
  Receipt Date: 20140910
  Transmission Date: 20150326
  Serious: Yes (Hospitalization)
  Sender: FDA-Public Use
  Company Number: JP-BAYER-2014-090702

PATIENT
  Age: 62 Year
  Sex: Female
  Weight: 50 kg

DRUGS (10)
  1. SENNA [Concomitant]
     Active Substance: SENNA LEAF\SENNOSIDES\SENNOSIDES A AND B
     Indication: CONSTIPATION
     Dosage: UNK
     Route: 048
     Dates: start: 2004
  2. OMNIPAQUE [Suspect]
     Active Substance: IOHEXOL
     Indication: COMPUTERISED TOMOGRAM
     Dosage: UNK
     Route: 042
     Dates: start: 20140325, end: 20140325
  3. ANPLAG [Concomitant]
     Active Substance: SARPOGRELATE
     Indication: PERIPHERAL ARTERIAL OCCLUSIVE DISEASE
     Dosage: UNK
     Route: 048
     Dates: start: 2009
  4. ONGLYZA [Suspect]
     Active Substance: SAXAGLIPTIN HYDROCHLORIDE
     Indication: DIABETES MELLITUS
     Dosage: UNK
     Route: 048
     Dates: start: 20140307, end: 20140331
  5. GLUCOBAY OD [Suspect]
     Active Substance: ACARBOSE
     Indication: DIABETES MELLITUS
     Dosage: 50 MG, TID
     Route: 048
     Dates: start: 20140205, end: 20140331
  6. CALCIUM CARBONATE [CALCIUM CARBONATE] [Concomitant]
     Indication: RENAL FAILURE CHRONIC
     Dosage: UNK
     Route: 048
     Dates: start: 1994
  7. TAKEPRON [Concomitant]
     Active Substance: LANSOPRAZOLE
     Indication: GASTRITIS
     Dosage: UNK
     Route: 048
     Dates: start: 2009
  8. ALLOPURINOL. [Concomitant]
     Active Substance: ALLOPURINOL
     Indication: HYPERURICAEMIA
     Dosage: UNK
     Route: 048
     Dates: start: 1999, end: 20140331
  9. SELBEX [Concomitant]
     Active Substance: TEPRENONE
     Indication: GASTRITIS
     Dosage: UNK
     Route: 048
     Dates: start: 2009
  10. CALONAL [Suspect]
     Active Substance: ACETAMINOPHEN
     Indication: PYREXIA
     Dosage: UNK
     Route: 048
     Dates: start: 20140221, end: 20140331

REACTIONS (1)
  - Stevens-Johnson syndrome [Recovered/Resolved]

NARRATIVE: CASE EVENT DATE: 20140328
